FAERS Safety Report 4293751-3 (Version None)
Quarter: 2004Q1

REPORT INFORMATION
  Report Type: 
  Country: None (occurrence: None)
  Receive Date: 20040212
  Receipt Date: 20040130
  Transmission Date: 20041129
  Serious: Yes (Congenital Anomaly)
  Sender: FDA-Public Use
  Company Number: GP-GLAXOSMITHKLINE-B0322250A

PATIENT

DRUGS (3)
  1. TRIZIVIR [Suspect]
     Indication: HIV INFECTION
     Dosage: 1TAB TWICE PER DAY
     Dates: end: 20040101
  2. COMBIVIR [Suspect]
     Indication: HIV INFECTION
     Dates: start: 20040101
  3. NELFINAVIR [Suspect]
     Indication: HIV INFECTION
     Dates: start: 20040101

REACTIONS (8)
  - CONGENITAL HAND MALFORMATION [None]
  - CONGENITAL MITOCHONDRIAL CYTOPATHY [None]
  - DRUG EXPOSURE DURING PREGNANCY [None]
  - ILL-DEFINED DISORDER [None]
  - MATERNAL DRUGS AFFECTING FOETUS [None]
  - MUSCULOSKELETAL DISORDER [None]
  - NERVOUS SYSTEM DISORDER [None]
  - TALIPES [None]
